FAERS Safety Report 12804842 (Version 1)
Quarter: 2016Q4

REPORT INFORMATION
  Report Type: Spontaneous
  Country: US (occurrence: US)
  Receive Date: 20161003
  Receipt Date: 20161003
  Transmission Date: 20170207
  Serious: No
  Sender: FDA-Public Use
  Company Number: US-009507513-1609USA014192

PATIENT
  Sex: Female
  Weight: 61.22 kg

DRUGS (1)
  1. NEXPLANON [Suspect]
     Active Substance: ETONOGESTREL
     Dosage: 3 YEAR IMPLANT, IN LEFT ARM
     Route: 059
     Dates: start: 20150709

REACTIONS (1)
  - Implant site paraesthesia [Unknown]

NARRATIVE: CASE EVENT DATE: 2016
